FAERS Safety Report 8986369 (Version 1)
Quarter: 2012Q4

REPORT INFORMATION
  Report Type: Report from Study
  Country: JP (occurrence: JP)
  Receive Date: 20121227
  Receipt Date: 20121227
  Transmission Date: 20130627
  Serious: Yes (Hospitalization)
  Sender: FDA-Public Use
  Company Number: JP-VERTEX PHARMACEUTICALS INC.-2012-026581

PATIENT
  Sex: Female

DRUGS (13)
  1. VX-950 (TELAPREVIR) [Suspect]
     Indication: CHRONIC HEPATITIS C
     Dosage: 1500 mg, qd
     Route: 048
     Dates: start: 20120905, end: 20121031
  2. RIBAVIRIN [Suspect]
     Indication: CHRONIC HEPATITIS C
     Dosage: 800 mg, qd
     Route: 048
     Dates: start: 20120905, end: 20121031
  3. RIBAVIRIN [Suspect]
     Dosage: 600 mg, qd
     Route: 048
     Dates: start: 20121101, end: 20121107
  4. PEGINTERFERON ALFA-2B [Suspect]
     Indication: CHRONIC HEPATITIS C
     Dosage: 1.6 ?g/kg, qw
     Route: 058
     Dates: start: 20120905, end: 20121101
  5. METHYCOBAL [Concomitant]
     Dosage: 1500 ?g, qd
     Route: 048
  6. JUVELA                             /00110502/ [Concomitant]
     Dosage: 150 mg, qd
     Route: 048
  7. DIOVAN [Concomitant]
     Dosage: 40 mg, qd
     Route: 048
     Dates: start: 20120905, end: 20121031
  8. ACINON [Concomitant]
     Dosage: 300 mg, qd
     Route: 048
     Dates: start: 20120905, end: 20121107
  9. PROMAC                             /00024401/ [Concomitant]
     Dosage: 150 mg, qd
     Route: 048
     Dates: start: 20120905, end: 20121107
  10. EPADEL                             /01682402/ [Concomitant]
     Dosage: 1200 mg, qd
     Route: 048
     Dates: start: 20120905, end: 20121107
  11. LENDEM D [Concomitant]
     Dosage: 0.25 mg, prn
     Route: 048
     Dates: start: 20120912
  12. LENDEM D [Concomitant]
     Dosage: 0.25 mg, qd
     Route: 048
     Dates: end: 20121106
  13. MYSLEE [Concomitant]
     Dosage: 5 mg, qd
     Route: 048
     Dates: start: 20121107, end: 20121121

REACTIONS (1)
  - Loss of consciousness [Not Recovered/Not Resolved]
